FAERS Safety Report 11913268 (Version 1)
Quarter: 2016Q1

REPORT INFORMATION
  Report Type: Spontaneous
  Country: IT (occurrence: IT)
  Receive Date: 20160113
  Receipt Date: 20160113
  Transmission Date: 20160526
  Serious: Yes (Death, Other)
  Sender: FDA-Public Use
  Company Number: IT-PFIZER INC-2015475852

PATIENT
  Age: 61 Year
  Sex: Male

DRUGS (2)
  1. ALL-TRANS RETINOIC ACID [Concomitant]
     Active Substance: TRETINOIN
     Indication: ACUTE LEUKAEMIA
     Dosage: UNK
  2. IDARUBICIN HCL [Suspect]
     Active Substance: IDARUBICIN HYDROCHLORIDE
     Indication: ACUTE LEUKAEMIA
     Dosage: A CUMULATIVE DOSE OF 280 MG WAS ADMINISTERED (I.E. 70 MG I.V. INFUSION ON 2ND, 4TH, 6TH, 8TH DAY)
     Route: 042

REACTIONS (4)
  - Cardiogenic shock [Unknown]
  - Accidental overdose [Fatal]
  - Ventricular fibrillation [Fatal]
  - Myocardial necrosis [Fatal]
